FAERS Safety Report 21651653 (Version 2)
Quarter: 2023Q1

REPORT INFORMATION
  Report Type: Spontaneous
  Country: BR (occurrence: BR)
  Receive Date: 20221128
  Receipt Date: 20230105
  Transmission Date: 20230418
  Serious: Yes (Other)
  Sender: FDA-Public Use
  Company Number: BR-009507513-2211BRA008356

PATIENT
  Age: 73 Year
  Sex: Female
  Weight: 79 kg

DRUGS (6)
  1. KEYTRUDA [Suspect]
     Active Substance: PEMBROLIZUMAB
     Indication: Breast cancer female
     Dosage: 200 MG EACH 21 DAYS
     Route: 042
     Dates: start: 20220823, end: 20220823
  2. KEYTRUDA [Suspect]
     Active Substance: PEMBROLIZUMAB
     Dosage: 200 MG EACH 21 DAYS
     Route: 042
     Dates: start: 20220823, end: 20220823
  3. KEYTRUDA [Suspect]
     Active Substance: PEMBROLIZUMAB
     Dosage: 400 MG
  4. CARBOPLATIN [Suspect]
     Active Substance: CARBOPLATIN
     Indication: Breast cancer female
     Dosage: STRENGHT: 50 MILLIGRAM, 1.5 AUC EACH 7 DAYS
     Route: 042
     Dates: start: 20220823, end: 20220823
  5. CARBOPLATIN [Suspect]
     Active Substance: CARBOPLATIN
     Dosage: STRENGHT: 150 MG, 1.5 AUC EACH 7 DAYS
     Route: 042
     Dates: start: 20220823, end: 20220823
  6. PACLITAXEL [Suspect]
     Active Substance: PACLITAXEL
     Indication: Breast cancer female
     Dosage: 80 MG/M2 EACH 7 DAYS
     Route: 042
     Dates: start: 20220823, end: 20220823

REACTIONS (1)
  - Neutropenia [Recovered/Resolved]

NARRATIVE: CASE EVENT DATE: 20220829
